FAERS Safety Report 24902859 (Version 2)
Quarter: 2025Q1

REPORT INFORMATION
  Report Type: Spontaneous
  Country: US (occurrence: None)
  Receive Date: 20250130
  Receipt Date: 20250211
  Transmission Date: 20250409
  Serious: No
  Sender: NATCO PHARMA
  Company Number: US-NATCOUSA-2025-NATCOUSA-000247

PATIENT
  Age: 72 Year
  Sex: Female
  Weight: 77.11 kg

DRUGS (5)
  1. LETROZOLE [Suspect]
     Active Substance: LETROZOLE
     Indication: Breast cancer
     Dosage: 2.5MG ONCE-A DAY FOR 14 DAYS?SINCE AUGUST 2022
     Route: 065
     Dates: start: 202208
  2. CELECOXIB [Concomitant]
     Active Substance: CELECOXIB
  3. OMEPRAZOLE [Concomitant]
     Active Substance: OMEPRAZOLE
  4. LEVOTHYROXINE [Concomitant]
     Active Substance: LEVOTHYROXINE
  5. LISINOPRIL [Concomitant]
     Active Substance: LISINOPRIL

REACTIONS (2)
  - Feeling jittery [Recovered/Resolved]
  - Malaise [Recovered/Resolved]
